FAERS Safety Report 6636241-2 (Version None)
Quarter: 2010Q1

REPORT INFORMATION
  Report Type: 
  Country: None (occurrence: None)
  Receive Date: 20100316
  Receipt Date: 20100304
  Transmission Date: 20100710
  Serious: Yes (Life-Threatening, Other)
  Sender: FDA-Public Use
  Company Number: JP-PFIZER INC-2010030068

PATIENT
  Age: 70 Year
  Sex: Male

DRUGS (2)
  1. ZYVOX [Suspect]
     Indication: PNEUMONIA STAPHYLOCOCCAL
     Dosage: 600 MG, SINGLE
     Route: 042
     Dates: start: 20100301, end: 20100301
  2. TARGOCID [Concomitant]
     Indication: PNEUMONIA STAPHYLOCOCCAL
     Dosage: UNK

REACTIONS (1)
  - ELECTROCARDIOGRAM QT PROLONGED [None]
